FAERS Safety Report 6271001-6 (Version None)
Quarter: 2009Q3

REPORT INFORMATION
  Report Type: 
  Country: None (occurrence: None)
  Receive Date: 20090716
  Receipt Date: 20090706
  Transmission Date: 20100115
  Serious: Yes (Other)
  Sender: FDA-Public Use
  Company Number: GB-ABBOTT-09P-167-0495926-00

PATIENT
  Sex: Female

DRUGS (8)
  1. KLARICID XL [Suspect]
     Indication: URINARY TRACT INFECTION
     Route: 048
     Dates: start: 20080720
  2. IPRATROPIUM BROMIDE [Concomitant]
     Indication: ASTHMA
     Dosage: INHALER
     Dates: start: 20081201
  3. ALBUTEROL [Concomitant]
     Indication: ASTHMA
     Dosage: AS REQUIRED
     Dates: start: 20030401
  4. LEVOTHYROXINE SODIUM [Concomitant]
     Indication: HYPERTHYROIDISM
     Dosage: 100MCG + 50MCG DAILY
     Route: 048
     Dates: start: 20000101
  5. HYDROCORTISONE 10MG TAB [Concomitant]
     Indication: ADDISON'S DISEASE
     Dosage: 10MG AM, 5MG MIDDAY, 5MG PM
     Route: 048
  6. FLUTICASONE [Concomitant]
     Indication: RHINITIS
     Dosage: EACH NOSTRIL
     Route: 045
  7. SYMBICORT [Concomitant]
     Indication: DRUG USE FOR UNKNOWN INDICATION
     Route: 048
     Dates: start: 20090501
  8. ATROVENT [Concomitant]
     Indication: DRUG USE FOR UNKNOWN INDICATION
     Route: 048

REACTIONS (2)
  - ANAEMIA [None]
  - ASTHMA [None]
